FAERS Safety Report 9715263 (Version 4)
Quarter: 2014Q1

REPORT INFORMATION
  Report Type: Spontaneous
  Country: FR (occurrence: FR)
  Receive Date: 20131127
  Receipt Date: 20140219
  Transmission Date: 20141002
  Serious: Yes (Hospitalization, Other)
  Sender: FDA-Public Use
  Company Number: FR-AMGEN-FRASP2013082865

PATIENT
  Age: 64 Year
  Sex: Male

DRUGS (13)
  1. ENBREL [Suspect]
     Indication: PSORIATIC ARTHROPATHY
     Dosage: 50 MG, WEEKLY
     Route: 065
     Dates: start: 2004, end: 201309
  2. RABEPRAZOLE SODIUM [Concomitant]
     Dosage: UNK
  3. PREVISCAN                          /00789001/ [Concomitant]
     Dosage: UNK
  4. TARDYFERON [Concomitant]
     Dosage: UNK
  5. AMIODARONE [Concomitant]
     Dosage: UNK
  6. PROCORALAN [Concomitant]
     Dosage: UNK
  7. ALDACTONE                          /00006201/ [Concomitant]
     Dosage: UNK
  8. BURINEX [Concomitant]
     Dosage: UNK
  9. ATACAND [Concomitant]
     Dosage: UNK
  10. ATORVASTATIN CALCIUM [Concomitant]
     Dosage: UNK
  11. BISOPROLOL FUMARATE [Concomitant]
     Dosage: UNK
  12. SERETIDE [Concomitant]
     Dosage: UNK
  13. HUMALOG [Concomitant]
     Dosage: UNK

REACTIONS (6)
  - Monarthritis [Unknown]
  - Atrial fibrillation [Unknown]
  - Congestive cardiomyopathy [Unknown]
  - Post procedural infection [Unknown]
  - Pasteurella infection [Unknown]
  - Endocarditis staphylococcal [Not Recovered/Not Resolved]
